FAERS Safety Report 16779606 (Version 1)
Quarter: 2019Q3

REPORT INFORMATION
  Report Type: Spontaneous
  Country: JP (occurrence: JP)
  Receive Date: 20190906
  Receipt Date: 20190906
  Transmission Date: 20191005
  Serious: Yes (Other)
  Sender: FDA-Public Use
  Company Number: JP-ACTELION-A-CH2019-194933

PATIENT
  Age: 7 Month
  Sex: Female

DRUGS (1)
  1. BRAZAVES [Suspect]
     Active Substance: MIGLUSTAT
     Indication: NIEMANN-PICK DISEASE
     Dosage: UNK
     Route: 048

REACTIONS (11)
  - Biopsy liver [Unknown]
  - Hepatomegaly [Unknown]
  - Concomitant disease aggravated [Unknown]
  - Hepatic function abnormal [Unknown]
  - Granuloma [Unknown]
  - Pneumonia aspiration [Unknown]
  - Disease recurrence [Unknown]
  - Anal erosion [Unknown]
  - Respiratory failure [Unknown]
  - Anal haemorrhage [Unknown]
  - Haemostasis [Unknown]
